FAERS Safety Report 6834382-8 (Version None)
Quarter: 2010Q3

REPORT INFORMATION
  Report Type: 
  Country: None (occurrence: None)
  Receive Date: 20100712
  Receipt Date: 20070417
  Transmission Date: 20110219
  Serious: No
  Sender: FDA-Public Use
  Company Number: US-PFIZER INC-2007031953

PATIENT
  Sex: Male
  Weight: 68.181 kg

DRUGS (7)
  1. CHANTIX [Suspect]
     Indication: SMOKING CESSATION THERAPY
     Dates: start: 20070409
  2. CYMBALTA [Concomitant]
  3. ALLEGRA [Concomitant]
  4. FLEXERIL [Concomitant]
  5. PERCOCET [Concomitant]
  6. NASONEX [Concomitant]
  7. AVELOX [Concomitant]

REACTIONS (1)
  - VOMITING [None]
